FAERS Safety Report 21466304 (Version 4)
Quarter: 2023Q1

REPORT INFORMATION
  Report Type: Report from Study
  Country: CA (occurrence: CA)
  Receive Date: 20221017
  Receipt Date: 20230118
  Transmission Date: 20230418
  Serious: Yes (Other)
  Sender: FDA-Public Use
  Company Number: CA-TAKEDA-2022TUS073048

PATIENT
  Age: 40 Year
  Sex: Male

DRUGS (7)
  1. VEDOLIZUMAB [Suspect]
     Active Substance: VEDOLIZUMAB
     Indication: Colitis ulcerative
     Dosage: 300 MILLIGRAM
     Route: 042
     Dates: start: 20220705
  2. VEDOLIZUMAB [Suspect]
     Active Substance: VEDOLIZUMAB
     Indication: Crohn^s disease
     Dosage: 300 MILLIGRAM
     Route: 042
  3. VEDOLIZUMAB [Suspect]
     Active Substance: VEDOLIZUMAB
     Dosage: 300 MILLIGRAM, Q4WEEKS
     Route: 042
     Dates: start: 20221108
  4. VEDOLIZUMAB [Suspect]
     Active Substance: VEDOLIZUMAB
     Dosage: 300 MILLIGRAM, Q4WEEKS
     Route: 042
     Dates: end: 20230105
  5. INFLECTRA [Concomitant]
     Active Substance: INFLIXIMAB-DYYB
     Dosage: UNK
  6. METHOTREXATE [Concomitant]
     Active Substance: METHOTREXATE
     Dosage: UNK UNK, 1/WEEK
  7. FOLIC ACID [Concomitant]
     Active Substance: FOLIC ACID
     Dosage: UNK

REACTIONS (5)
  - Crohn^s disease [Not Recovered/Not Resolved]
  - Fistula [Unknown]
  - Poor venous access [Unknown]
  - Treatment failure [Unknown]
  - Off label use [Unknown]

NARRATIVE: CASE EVENT DATE: 20221108
